FAERS Safety Report 9846138 (Version 1)
Quarter: 2014Q1

REPORT INFORMATION
  Report Type: Spontaneous
  Country: DE (occurrence: None)
  Receive Date: 20140123
  Receipt Date: 20140123
  Transmission Date: 20141002
  Serious: Yes (Other)
  Sender: FDA-Public Use
  Company Number: 1401-0096

PATIENT
  Age: 82 Year
  Sex: Female

DRUGS (2)
  1. EYLEA [Suspect]
     Indication: AGE-RELATED MACULAR DEGENERATION
     Dates: start: 201305
  2. WARFARIN (WARFARIN) [Suspect]
     Dates: start: 2012

REACTIONS (2)
  - Cataract operation [None]
  - Ocular hyperaemia [None]
